FAERS Safety Report 9177836 (Version 1)
Quarter: 2013Q1

REPORT INFORMATION
  Report Type: Spontaneous
  Country: US (occurrence: None)
  Receive Date: 20130319
  Receipt Date: 20130319
  Transmission Date: 20140127
  Serious: Yes (Other)
  Sender: FDA-Public Use
  Company Number: FK201300815

PATIENT
  Age: 81 Year
  Sex: Female

DRUGS (3)
  1. FLUOROURACIL [Suspect]
     Route: 061
  2. METHOTREXATE [Suspect]
  3. PREDNISONE [Suspect]

REACTIONS (4)
  - Dermatitis contact [None]
  - Superinfection [None]
  - Eczema herpeticum [None]
  - Epidermal necrosis [None]
